FAERS Safety Report 10517456 (Version 1)
Quarter: 2014Q4

REPORT INFORMATION
  Report Type: Spontaneous
  Country: US (occurrence: None)
  Receive Date: 20141003
  Receipt Date: 20141003
  Transmission Date: 20150528
  Serious: Yes (Other)
  Sender: FDA-Public Use
  Company Number: 1252971

PATIENT
  Age: 64 Year
  Sex: Male

DRUGS (4)
  1. FLECAINIDE [Concomitant]
     Active Substance: FLECAINIDE
  2. PEGASYS [Suspect]
     Active Substance: PEGINTERFERON ALFA-2A
     Indication: CHRONIC HEPATITIS C
     Dates: start: 201210
  3. COPEGUS [Suspect]
     Active Substance: RIBAVIRIN
     Indication: CHRONIC HEPATITIS C
     Dates: start: 201210
  4. INCIVEK [Concomitant]
     Active Substance: TELAPREVIR

REACTIONS (2)
  - Atrial flutter [None]
  - Atrial fibrillation [None]

NARRATIVE: CASE EVENT DATE: 20130712
